FAERS Safety Report 14345847 (Version 7)
Quarter: 2018Q2

REPORT INFORMATION
  Report Type: Spontaneous
  Country: DE (occurrence: DE)
  Receive Date: 20180103
  Receipt Date: 20180503
  Transmission Date: 20180711
  Serious: Yes (Hospitalization, Other)
  Sender: FDA-Public Use
  Company Number: DE-HTU-2017DE013567

PATIENT
  Age: 60 Year
  Sex: Male
  Weight: 95 kg

DRUGS (26)
  1. 5-FLUOROURACIL [Suspect]
     Active Substance: FLUOROURACIL
     Dosage: 4800 MG, UNK
     Route: 042
     Dates: start: 20171016, end: 20171016
  2. 5-FLUOROURACIL [Suspect]
     Active Substance: FLUOROURACIL
     Dosage: 6400 MILLIGRAM, 2/WEEK
     Route: 041
     Dates: start: 20170410, end: 20170412
  3. FOLINIC ACID [Suspect]
     Active Substance: LEUCOVORIN
     Indication: COLORECTAL CANCER
     Dosage: 800 MG, 2/WEEK
     Route: 042
     Dates: start: 20160704, end: 20170410
  4. EMEND [Concomitant]
     Active Substance: APREPITANT
     Indication: PROPHYLAXIS OF NAUSEA AND VOMITING
     Dosage: 125/80MG
     Route: 048
     Dates: start: 20160704
  5. 5-FLUOROURACIL [Suspect]
     Active Substance: FLUOROURACIL
     Dosage: 800 MG, 2/WEEK
     Route: 040
     Dates: start: 20160704, end: 20161205
  6. MCP [Concomitant]
     Active Substance: METOCLOPRAMIDE HYDROCHLORIDE
     Indication: PRODUCT USED FOR UNKNOWN INDICATION
  7. 5-FLUOROURACIL [Suspect]
     Active Substance: FLUOROURACIL
     Indication: COLON CANCER METASTATIC
     Dosage: 4800 MG, UNK
     Route: 042
     Dates: start: 20160704, end: 20170706
  8. PEGYLATED LIPOSOMAL IRINOTECAN [Suspect]
     Active Substance: IRINOTECAN HYDROCHLORIDE
     Indication: COLON CANCER METASTATIC
     Dosage: 360 MG, 2/WEEK
     Route: 042
     Dates: start: 20160704, end: 20161205
  9. RAMIPRIL. [Concomitant]
     Active Substance: RAMIPRIL
     Indication: HYPERTENSION
     Dosage: 2.5 MG, QD
     Route: 048
     Dates: start: 20170410
  10. NOVALGIN (METAMIZOLE SODIUM) [Concomitant]
     Active Substance: METAMIZOLE SODIUM
     Indication: ANALGESIC THERAPY
     Dosage: UNK
     Route: 048
     Dates: start: 20160620
  11. PALONOSETRON HYDROCHLORIDE. [Suspect]
     Active Substance: PALONOSETRON HYDROCHLORIDE
     Indication: PROPHYLAXIS OF NAUSEA AND VOMITING
     Dosage: UNK
  12. AVASTIN [Suspect]
     Active Substance: BEVACIZUMAB
     Dosage: 500 MG, 2/WEEK
     Route: 042
     Dates: start: 20171016, end: 20171016
  13. METOCLOPRAMIDE. [Concomitant]
     Active Substance: METOCLOPRAMIDE
     Dosage: UNK
     Route: 048
     Dates: start: 20171016
  14. DEXAMETHASONE. [Concomitant]
     Active Substance: DEXAMETHASONE
     Indication: PROPHYLAXIS OF NAUSEA AND VOMITING
     Dosage: 8 MG, 2/WEEK
     Route: 042
     Dates: start: 20160604, end: 20161206
  15. DEXAMETHASONE. [Concomitant]
     Active Substance: DEXAMETHASONE
     Dosage: 12 MG, 2/WEEK
     Route: 042
     Dates: start: 20170116
  16. PALONOSETRON HYDROCHLORIDE. [Suspect]
     Active Substance: PALONOSETRON HYDROCHLORIDE
     Dosage: UNK
     Dates: start: 20171030
  17. 5-FLUOROURACIL [Suspect]
     Active Substance: FLUOROURACIL
     Dosage: UNK
     Route: 042
  18. 5-FLUOROURACIL [Suspect]
     Active Substance: FLUOROURACIL
     Dosage: 4800-6400 MILLIGRAM, 2/WEEK
     Route: 041
     Dates: start: 20160704
  19. PEGYLATED LIPOSOMAL IRINOTECAN [Suspect]
     Active Substance: IRINOTECAN HYDROCHLORIDE
     Dosage: 720 MG, 1/WEEK
     Route: 042
     Dates: start: 20171016, end: 20171016
  20. 5-FLUOROURACIL [Suspect]
     Active Substance: FLUOROURACIL
     Dosage: 6400 MILLIGRAM, QD
     Route: 040
     Dates: start: 20171001, end: 20171004
  21. 5-FLUOROURACIL [Suspect]
     Active Substance: FLUOROURACIL
     Dosage: 6400 MILLIGRAM, 2/WEEK
     Route: 042
     Dates: start: 20181002
  22. BEVACIZUMAB. [Suspect]
     Active Substance: BEVACIZUMAB
     Dosage: 500 MILLIGRAM, 2/WEEK
     Route: 042
     Dates: start: 20171002, end: 20171002
  23. ONDANSETRON [Suspect]
     Active Substance: ONDANSETRON
     Indication: PROPHYLAXIS OF NAUSEA AND VOMITING
     Dosage: 8 MG, 2/WEEK
     Route: 042
     Dates: start: 20170116
  24. RIVAROXABAN [Suspect]
     Active Substance: RIVAROXABAN
     Indication: DEEP VEIN THROMBOSIS
     Dosage: 20 MG, QD
     Route: 048
     Dates: start: 20170524
  25. AVASTIN [Suspect]
     Active Substance: BEVACIZUMAB
     Indication: COLORECTAL CANCER METASTATIC
     Dosage: 475 MG, 2/WEEK
     Route: 042
     Dates: start: 20160704, end: 20160704
  26. FOLINIC ACID [Suspect]
     Active Substance: LEUCOVORIN
     Dosage: 800 MG, UNK
     Route: 042
     Dates: start: 20171016, end: 20171016

REACTIONS (6)
  - Nausea [Not Recovered/Not Resolved]
  - Haematochezia [Recovered/Resolved]
  - Paraesthesia [Recovered/Resolved]
  - Constipation [Recovered/Resolved]
  - Vomiting [Recovered/Resolved]
  - Deep vein thrombosis [Recovered/Resolved with Sequelae]

NARRATIVE: CASE EVENT DATE: 20170422
